FAERS Safety Report 9420140 (Version 2)
Quarter: 2013Q3

REPORT INFORMATION
  Report Type: Spontaneous
  Country: US (occurrence: US)
  Receive Date: 20130725
  Receipt Date: 20130807
  Transmission Date: 20140515
  Serious: Yes (Hospitalization)
  Sender: FDA-Public Use
  Company Number: US-BAYER-2013-088543

PATIENT
  Age: 21 Year
  Sex: Female

DRUGS (6)
  1. YASMIN [Suspect]
  2. YAZ [Suspect]
  3. ALPRAZOLAM [Concomitant]
  4. PHENYTOIN [Concomitant]
     Indication: CONVULSION
  5. KEPPRA [Concomitant]
     Indication: CONVULSION
  6. DILANTIN [Concomitant]

REACTIONS (2)
  - Cerebral venous thrombosis [None]
  - Cerebral infarction [None]
